FAERS Safety Report 25081272 (Version 3)
Quarter: 2025Q2

REPORT INFORMATION
  Report Type: Spontaneous
  Country: US (occurrence: US)
  Receive Date: 20250316
  Receipt Date: 20250510
  Transmission Date: 20250717
  Serious: Yes (Other)
  Sender: SANOFI AVENTIS
  Company Number: US-SA-2025SA074293

PATIENT
  Age: 68 Year
  Sex: Female
  Weight: 103.59 kg

DRUGS (1)
  1. KEVZARA [Suspect]
     Active Substance: SARILUMAB
     Indication: Polymyalgia rheumatica
     Dosage: 200 MG, QOW
     Route: 058
     Dates: start: 20250129

REACTIONS (7)
  - Compression fracture [Unknown]
  - Osteoporosis [Unknown]
  - Injection site bruising [Unknown]
  - Tinnitus [Unknown]
  - Eye swelling [Unknown]
  - Peripheral swelling [Unknown]
  - Injection site erythema [Unknown]

NARRATIVE: CASE EVENT DATE: 20250101
